FAERS Safety Report 10388762 (Version 1)
Quarter: 2014Q1

REPORT INFORMATION
  Report Type: Spontaneous
  Country: US (occurrence: None)
  Receive Date: 20140306
  Receipt Date: 20140306
  Transmission Date: 20141002
  Serious: Yes (Other)
  Sender: FDA-Public Use
  Company Number: 163-21880-13123283

PATIENT
  Age: 68 Year
  Sex: Female

DRUGS (4)
  1. REVLIMID [Suspect]
     Indication: PLASMA CELL MYELOMA
     Dosage: 21 IN 21 D
     Route: 048
     Dates: start: 20120410
  2. RENAL MULTIVITAMIN / ZINC [Concomitant]
  3. NITROFURANTOIN / MACROCRYSTAL [Concomitant]
  4. ACETAMINOPHEN - CODEINE [Concomitant]

REACTIONS (2)
  - Spinal fracture [None]
  - Platelet count decreased [None]
